FAERS Safety Report 10026829 (Version 3)
Quarter: 2014Q2

REPORT INFORMATION
  Report Type: Spontaneous
  Country: US (occurrence: US)
  Receive Date: 20140321
  Receipt Date: 20140522
  Transmission Date: 20141212
  Serious: Yes (Hospitalization)
  Sender: FDA-Public Use
  Company Number: US-009507513-1403USA005621

PATIENT
  Sex: Male
  Weight: 95.24 kg

DRUGS (5)
  1. SINEMET [Suspect]
     Indication: PARKINSON^S DISEASE
     Dosage: 10 AND 0.5 TABLET PER DAY NOT ALL AT ONCE, TAKEN THROUGHOUT THE DAY
     Route: 048
     Dates: start: 1994
  2. SINEMET [Suspect]
     Dosage: UNK
     Route: 048
  3. MIRAPEX [Concomitant]
     Dosage: UNK
  4. GABAPENTIN [Concomitant]
     Indication: PAIN
     Dosage: OCCASIONALLY
  5. VITAMINS (UNSPECIFIED) [Concomitant]
     Dosage: UNK

REACTIONS (11)
  - Parkinson^s disease [Recovering/Resolving]
  - Multiple fractures [Recovered/Resolved]
  - Fluid replacement [Recovering/Resolving]
  - Palliative care [Recovering/Resolving]
  - Fall [Recovered/Resolved]
  - Upper limb fracture [Recovered/Resolved]
  - Fractured coccyx [Recovered/Resolved]
  - Drug ineffective [Recovering/Resolving]
  - Overdose [Unknown]
  - Wrong technique in drug usage process [Unknown]
  - Head injury [Unknown]
